FAERS Safety Report 7814775-2 (Version None)
Quarter: 2011Q4

REPORT INFORMATION
  Report Type: 
  Country: None (occurrence: None)
  Receive Date: 20111012
  Receipt Date: 20110927
  Transmission Date: 20120403
  Serious: Yes (Other)
  Sender: FDA-Public Use
  Company Number: JP-2011-11592

PATIENT
  Age: 60 Year
  Sex: Female

DRUGS (2)
  1. SAMSCA [Suspect]
     Indication: CARDIAC FAILURE
     Dosage: 7.5 MG MILLIGRAM(S), QD, ORAL
     Route: 048
     Dates: start: 20110922, end: 20110922
  2. SAMSCA [Suspect]
     Indication: HYPONATRAEMIA
     Dosage: 7.5 MG MILLIGRAM(S), QD, ORAL
     Route: 048
     Dates: start: 20110922, end: 20110922

REACTIONS (1)
  - OSMOTIC DEMYELINATION SYNDROME [None]
